FAERS Safety Report 18050199 (Version 3)
Quarter: 2021Q3

REPORT INFORMATION
  Report Type: Spontaneous
  Country: US (occurrence: US)
  Receive Date: 20200721
  Receipt Date: 20210819
  Transmission Date: 20211014
  Serious: Yes (Hospitalization, Other)
  Sender: FDA-Public Use
  Company Number: US-TEVA-2020-US-1804283

PATIENT
  Age: 52 Year
  Sex: Female
  Weight: 61.2 kg

DRUGS (12)
  1. VALSARTAN W/HYDROCHLOROTHIAZIDE SOLCO [Suspect]
     Active Substance: HYDROCHLOROTHIAZIDE\VALSARTAN
     Indication: HYPERTENSION
     Dosage: 1 DOSAGE FORMS DAILY; VALSARTAN 160 MG/ HYDROCHLOROTHIAZIDE 25 MG
     Route: 048
     Dates: start: 20160726, end: 20170115
  2. VALSARTAN W/HYDROCHLOROTHIAZIDE MACLEODS [Suspect]
     Active Substance: HYDROCHLOROTHIAZIDE\VALSARTAN
     Indication: HYPERTENSION
     Dosage: 1 DOSAGE FORMS DAILY; VALSARTAN 160 MG/ HYDROCHLOROTHIAZIDE 25 MG
     Route: 048
     Dates: start: 20160520, end: 20160619
  3. VALSARTAN W/HYDROCHLOROTHIAZIDE LUPIN [Suspect]
     Active Substance: HYDROCHLOROTHIAZIDE\VALSARTAN
     Indication: HYPERTENSION
     Dosage: 1 DOSAGE FORMS DAILY; VALSARTAN 160 MG/ HYDROCHLOROTHIAZIDE 25 MG
     Route: 048
     Dates: start: 20160620, end: 20160720
  4. LOSARTAN. [Concomitant]
     Active Substance: LOSARTAN
     Indication: HYPERTENSION
     Route: 065
  5. HYDROCHLOROTHIAZIDE. [Concomitant]
     Active Substance: HYDROCHLOROTHIAZIDE
     Indication: HYPERTENSION
     Route: 065
  6. CARVEDILOL. [Concomitant]
     Active Substance: CARVEDILOL
     Indication: CARDIAC FAILURE CONGESTIVE
     Route: 065
     Dates: start: 2007
  7. DIGOXIN. [Concomitant]
     Active Substance: DIGOXIN
     Indication: CARDIAC FAILURE CONGESTIVE
     Dosage: .125 MILLIGRAM DAILY;
     Route: 065
     Dates: start: 2007, end: 2012
  8. BENICAR HCT [Concomitant]
     Active Substance: HYDROCHLOROTHIAZIDE\OLMESARTAN MEDOXOMIL
     Indication: HYPERTENSION
     Route: 065
  9. REVATIO AND SILDENAFIL [Concomitant]
     Indication: HYPERTENSION
     Route: 065
     Dates: start: 2007, end: 202003
  10. METROPOLOL SUCCINATE EXTENDED RELEASE [Concomitant]
     Indication: CARDIAC FAILURE CONGESTIVE
     Dosage: 25 MILLIGRAM DAILY;
     Route: 065
     Dates: start: 2007
  11. VALSARTAN W/HYDROCHLOROTHIAZIDE TEVA [Suspect]
     Active Substance: HYDROCHLOROTHIAZIDE\VALSARTAN
     Indication: HYPERTENSION
     Dosage: 1 DOSAGE FORMS DAILY; VALSARTAN 160 MG/ HYDROCHLOROTHIAZIDE 25 MG
     Route: 048
     Dates: start: 20170306, end: 20170428
  12. VALSARTAN NOVARTIS [Suspect]
     Active Substance: VALSARTAN
     Indication: HYPERTENSION
     Dosage: 160 MILLIGRAM DAILY;
     Route: 048
     Dates: start: 20121120, end: 20121220

REACTIONS (1)
  - Rectosigmoid cancer [Recovered/Resolved]
